FAERS Safety Report 25740521 (Version 2)
Quarter: 2025Q4

REPORT INFORMATION
  Report Type: Spontaneous
  Country: US (occurrence: US)
  Receive Date: 20250829
  Receipt Date: 20251003
  Transmission Date: 20260117
  Serious: No
  Sender: LUPIN
  Company Number: US-LUPIN PHARMACEUTICALS INC.-2025-07541

PATIENT
  Age: 68 Year
  Weight: 74.83 kg

DRUGS (2)
  1. ALBUTEROL SULFATE [Suspect]
     Active Substance: ALBUTEROL SULFATE
     Indication: Chronic obstructive pulmonary disease
     Dosage: (2 PUFFS EVERY 6 HOURS, MOSTLY AT NIGHT UPON WAKING WHEN SHE CANNOT BREATHE OR PROBABLY 2 TO 4 PUFFS OVER A 24-HOUR PERIOD)
  2. ALBUTEROL SULFATE [Suspect]
     Active Substance: ALBUTEROL SULFATE
     Indication: Dyspnoea

REACTIONS (4)
  - Vomiting [Unknown]
  - Product packaging quantity issue [Unknown]
  - Wrong technique in product usage process [Unknown]
  - Device deposit issue [Unknown]
